FAERS Safety Report 26189432 (Version 1)
Quarter: 2025Q4

REPORT INFORMATION
  Report Type: Spontaneous
  Country: US (occurrence: US)
  Receive Date: 20251223
  Receipt Date: 20251223
  Transmission Date: 20260117
  Serious: No
  Sender: NIVAGEN PHARMACEUTICALS INC
  Company Number: None

PATIENT

DRUGS (1)
  1. CALCIUM GLUCONATE [Suspect]
     Active Substance: CALCIUM GLUCONATE
     Indication: Product used for unknown indication
     Dosage: 5,000 MG PER 50 ML (100 MG PER ML)
     Route: 065

REACTIONS (2)
  - Medication error [Unknown]
  - Product deposit [Unknown]
